FAERS Safety Report 21311214 (Version 1)
Quarter: 2022Q3

REPORT INFORMATION
  Report Type: Spontaneous
  Country: US (occurrence: None)
  Receive Date: 20220909
  Receipt Date: 20220909
  Transmission Date: 20221027
  Serious: No
  Sender: FDA-Public Use
  Company Number: US-FARMAPROD-202202-0247

PATIENT
  Sex: Male

DRUGS (5)
  1. OXERVATE [Suspect]
     Active Substance: CENEGERMIN-BKBJ
     Indication: Neurotrophic keratopathy
     Route: 047
     Dates: start: 20220103, end: 20220228
  2. COSOPT PF [Concomitant]
     Active Substance: DORZOLAMIDE HYDROCHLORIDE\TIMOLOL MALEATE
     Dosage: 2 %-0.5 %
  3. ZIOPTAN [Concomitant]
     Active Substance: TAFLUPROST
  4. OFLOXACIN [Concomitant]
     Active Substance: OFLOXACIN
  5. RHOPRESSA [Concomitant]
     Active Substance: NETARSUDIL MESYLATE

REACTIONS (4)
  - Corneal deposits [Unknown]
  - Eye pain [Unknown]
  - Ocular discomfort [Unknown]
  - Eye irritation [Unknown]
